FAERS Safety Report 25234189 (Version 1)
Quarter: 2025Q2

REPORT INFORMATION
  Report Type: Spontaneous
  Country: US (occurrence: US)
  Receive Date: 20250424
  Receipt Date: 20250424
  Transmission Date: 20250717
  Serious: No
  Sender: ABBVIE
  Company Number: US-ABBVIE-6243951

PATIENT
  Age: 56 Year
  Weight: 71.667 kg

DRUGS (4)
  1. SYNTHROID [Suspect]
     Active Substance: LEVOTHYROXINE SODIUM
     Indication: Hypothyroidism
     Dosage: 75 MILLIGRAM?FORM STRENGTH: 75 MILLIGRAM START DATE TEXT: YEARS AGO
     Route: 048
     Dates: end: 202502
  2. SYNTHROID [Suspect]
     Active Substance: LEVOTHYROXINE SODIUM
     Indication: Hypothyroidism
     Dosage: 50 MILLIGRAM?FORM STRENGTH: 50?MILLIGRAM
     Route: 048
     Dates: start: 202502, end: 20250331
  3. SYNTHROID [Suspect]
     Active Substance: LEVOTHYROXINE SODIUM
     Indication: Hypothyroidism
     Dosage: 50 MILLIGRAM?FORM STRENGTH: 50 MILLIGRAM
     Route: 048
     Dates: start: 20250401
  4. METFORMIN [Concomitant]
     Active Substance: METFORMIN HYDROCHLORIDE
     Indication: Menstrual disorder

REACTIONS (4)
  - Psychomotor hyperactivity [Unknown]
  - Anxiety [Unknown]
  - Insomnia [Unknown]
  - Weight decreased [Recovered/Resolved]

NARRATIVE: CASE EVENT DATE: 20250101
